FAERS Safety Report 4428512-5 (Version None)
Quarter: 2004Q3

REPORT INFORMATION
  Report Type: 
  Country: None (occurrence: None)
  Receive Date: 20040817
  Receipt Date: 20040806
  Transmission Date: 20050211
  Serious: Yes (Hospitalization)
  Sender: FDA-Public Use
  Company Number: 2004CG01020

PATIENT
  Age: 82 Year
  Sex: Female
  Weight: 43 kg

DRUGS (7)
  1. CRESTOR [Suspect]
     Dosage: 10 MG QD PO
     Route: 048
     Dates: start: 20040313, end: 20040601
  2. PLAVIX [Concomitant]
  3. HEMIGOXINE NATIVELLE [Concomitant]
  4. APROVEL [Concomitant]
  5. NATIDROFLURYL [Concomitant]
  6. DHEA [Concomitant]
  7. ISKEDYL [Concomitant]

REACTIONS (3)
  - ASTHENIA [None]
  - HYPOTENSION [None]
  - NEUTROPENIA [None]
